FAERS Safety Report 19486660 (Version 1)
Quarter: 2021Q3

REPORT INFORMATION
  Report Type: Spontaneous
  Country: GB (occurrence: GB)
  Receive Date: 20210702
  Receipt Date: 20210702
  Transmission Date: 20211014
  Serious: Yes (Other)
  Sender: FDA-Public Use
  Company Number: NVSC2021GB142079

PATIENT
  Age: 14 Year
  Sex: Female
  Weight: 79 kg

DRUGS (6)
  1. CLOBETASONE BUTYRATE [Concomitant]
     Active Substance: CLOBETASONE BUTYRATE
     Indication: ECZEMA
     Dosage: 1 DF, BID (APPLY TWICE DAILY WHEN NEEDED FOR ECZEMA)
     Route: 065
     Dates: start: 20201012
  2. AMOXICILLIN. [Suspect]
     Active Substance: AMOXICILLIN
     Indication: PRODUCT USED FOR UNKNOWN INDICATION
     Dosage: 500 MG, TID
     Route: 065
     Dates: start: 20210604
  3. HYDROMOL [Concomitant]
     Indication: PRODUCT USED FOR UNKNOWN INDICATION
     Dosage: UNK, PRN (USE AS DIRECTED AS OFTEN AS NEEDED   )
     Route: 065
     Dates: start: 20201012
  4. CLARITHROMYCIN. [Concomitant]
     Active Substance: CLARITHROMYCIN
     Indication: OTITIS MEDIA
     Dosage: UNK
     Route: 065
     Dates: start: 20210621
  5. MOMETASONE [Concomitant]
     Active Substance: MOMETASONE
     Indication: ECZEMA
     Dosage: UNK
     Route: 065
     Dates: start: 20201012
  6. SALBUTAMOL [Concomitant]
     Active Substance: ALBUTEROL
     Indication: PRODUCT USED FOR UNKNOWN INDICATION
     Dosage: 2 DF, PRN
     Route: 055
     Dates: start: 20210603

REACTIONS (1)
  - Skin exfoliation [Recovered/Resolved]
